FAERS Safety Report 4441021-2 (Version None)
Quarter: 2004Q3

REPORT INFORMATION
  Report Type: 
  Country: None (occurrence: None)
  Receive Date: 20040902
  Receipt Date: 20040902
  Transmission Date: 20050211
  Serious: Yes (Hospitalization)
  Sender: FDA-Public Use
  Company Number: None

PATIENT
  Age: 76 Year

DRUGS (11)
  1. GLEEVEC [Suspect]
     Dosage: 300 MG/DAILY
     Dates: start: 20040223
  2. GEMZAR [Suspect]
     Dosage: 700 MG /M2 D1 AND D2
     Dates: start: 20140223
  3. PROVIGIL HX [Concomitant]
  4. FLUCOPHAGE [Concomitant]
  5. LIPRAM [Concomitant]
  6. NORVASC [Concomitant]
  7. ACTOS [Concomitant]
  8. TOPROL-XL [Concomitant]
  9. HYDROCHLOROTHIAXINDE [Concomitant]
  10. LANTUS [Concomitant]
  11. ATIVAN [Concomitant]

REACTIONS (4)
  - ABDOMINAL PAIN [None]
  - CHILLS [None]
  - PYREXIA [None]
  - SMALL INTESTINAL OBSTRUCTION [None]
